FAERS Safety Report 6552846-1 (Version None)
Quarter: 2010Q1

REPORT INFORMATION
  Report Type: 
  Country: None (occurrence: None)
  Receive Date: 20100122
  Receipt Date: 20091208
  Transmission Date: 20100710
  Serious: No
  Sender: FDA-Public Use
  Company Number: 004772

PATIENT
  Sex: Male

DRUGS (2)
  1. NEUPRO [Suspect]
  2. LEVODOPA [Concomitant]

REACTIONS (1)
  - PULMONARY EMBOLISM [None]
